FAERS Safety Report 15777829 (Version 1)
Quarter: 2018Q4

REPORT INFORMATION
  Report Type: Spontaneous
  Country: US (occurrence: US)
  Receive Date: 20181231
  Receipt Date: 20181231
  Transmission Date: 20190205
  Serious: Yes (Hospitalization, Other)
  Sender: FDA-Public Use
  Company Number: None

PATIENT
  Age: 34 Year
  Sex: Female
  Weight: 90 kg

DRUGS (3)
  1. PRIVIGEN [Suspect]
     Active Substance: HUMAN IMMUNOGLOBULIN G
     Indication: DERMATOMYOSITIS
     Route: 042
     Dates: start: 20181105, end: 20181109
  2. PRIVIGEN 5GM 44206-0436-05 LOT P100006125 EXP 03/16/2021 [Concomitant]
     Dates: start: 20181105, end: 20181109
  3. PRIVIGEN [Suspect]
     Active Substance: HUMAN IMMUNOGLOBULIN G
     Indication: DERMATOMYOSITIS
     Route: 042
     Dates: start: 20181105, end: 20181109

REACTIONS (2)
  - Migraine [None]
  - Meningitis aseptic [None]

NARRATIVE: CASE EVENT DATE: 20181106
